FAERS Safety Report 7583700-4 (Version None)
Quarter: 2011Q2

REPORT INFORMATION
  Report Type: 
  Country: None (occurrence: None)
  Receive Date: 20110630
  Receipt Date: 20110620
  Transmission Date: 20111010
  Serious: Yes (Other)
  Sender: FDA-Public Use
  Company Number: B0727167A

PATIENT
  Sex: Male
  Weight: 70 kg

DRUGS (1)
  1. REQUIP XL [Suspect]
     Route: 048
     Dates: start: 20101213, end: 20110609

REACTIONS (1)
  - PARANOIA [None]
